FAERS Safety Report 12317901 (Version 1)
Quarter: 2016Q2

REPORT INFORMATION
  Report Type: Spontaneous
  Country: US (occurrence: None)
  Receive Date: 20160428
  Receipt Date: 20160428
  Transmission Date: 20160815
  Serious: Yes (Other)
  Sender: FDA-Public Use
  Company Number: None

PATIENT
  Age: 57 Year
  Sex: Male

DRUGS (9)
  1. GLATIRAMER [Concomitant]
     Active Substance: GLATIRAMER
  2. GLIPIZIDE/METFORMIN [Concomitant]
     Active Substance: GLIPIZIDE\METFORMIN HYDROCHLORIDE
  3. FUROSEMIDE. [Concomitant]
     Active Substance: FUROSEMIDE
  4. AMPYRA [Suspect]
     Active Substance: DALFAMPRIDINE
     Indication: MULTIPLE SCLEROSIS
     Route: 048
     Dates: start: 201202
  5. NPH INSULIN [Concomitant]
     Active Substance: INSULIN BEEF
  6. SERTRALINE [Concomitant]
     Active Substance: SERTRALINE HYDROCHLORIDE
  7. DONEPEZIL. [Concomitant]
     Active Substance: DONEPEZIL
  8. NPH INSULIN [Concomitant]
     Active Substance: INSULIN BEEF
  9. ATORVASTATIN [Concomitant]
     Active Substance: ATORVASTATIN

REACTIONS (1)
  - Urinary tract infection enterococcal [None]

NARRATIVE: CASE EVENT DATE: 20160422
